FAERS Safety Report 20204308 (Version 1)
Quarter: 2021Q4

REPORT INFORMATION
  Report Type: Spontaneous
  Country: CA (occurrence: CA)
  Receive Date: 20211220
  Receipt Date: 20211220
  Transmission Date: 20220303
  Serious: Yes (Life-Threatening, Hospitalization, Other)
  Sender: FDA-Public Use
  Company Number: CA-BAYER-2021A268218

PATIENT
  Age: 80 Year
  Sex: Male

DRUGS (9)
  1. XARELTO [Suspect]
     Active Substance: RIVAROXABAN
     Indication: Atrial fibrillation
     Dosage: 20 MG, QD
     Route: 048
  2. XARELTO [Suspect]
     Active Substance: RIVAROXABAN
     Indication: Atrial fibrillation
     Dosage: UNK
     Route: 048
  3. ATORVASTATIN [Concomitant]
     Active Substance: ATORVASTATIN
  4. METOPROLOL [Concomitant]
     Active Substance: METOPROLOL
  5. PERINDOPRIL [Concomitant]
     Active Substance: PERINDOPRIL
  6. CURCUMIN TURMERIC [CURCUMA LONGA RHIZOME] [Concomitant]
  7. FUROSEMIDE [Concomitant]
     Active Substance: FUROSEMIDE
  8. NITROGLYCERIN [Concomitant]
     Active Substance: NITROGLYCERIN
  9. IMDUR [Concomitant]
     Active Substance: ISOSORBIDE MONONITRATE

REACTIONS (8)
  - Cerebral haemorrhage [Unknown]
  - Intraventricular haemorrhage [Unknown]
  - Hydrocephalus [Unknown]
  - Hemiparesis [Unknown]
  - Pneumonia aspiration [Unknown]
  - Cerebrovascular accident [Unknown]
  - Depressed level of consciousness [Unknown]
  - Hypertension [Unknown]
